FAERS Safety Report 6154179-4 (Version None)
Quarter: 2009Q2

REPORT INFORMATION
  Report Type: 
  Country: None (occurrence: None)
  Receive Date: 20090414
  Receipt Date: 20090408
  Transmission Date: 20091009
  Serious: Yes (Death, Hospitalization)
  Sender: FDA-Public Use
  Company Number: US-ROCHE-626572

PATIENT
  Sex: Female
  Weight: 54.4 kg

DRUGS (1)
  1. CAPECITABINE [Suspect]
     Indication: GASTROINTESTINAL CARCINOMA
     Route: 048
     Dates: start: 20090210

REACTIONS (1)
  - PNEUMONIA [None]
